FAERS Safety Report 6122154-1 (Version None)
Quarter: 2009Q1

REPORT INFORMATION
  Report Type: 
  Country: None (occurrence: None)
  Receive Date: 20090318
  Receipt Date: 20090309
  Transmission Date: 20090719
  Serious: Yes (Other)
  Sender: FDA-Public Use
  Company Number: PHHY2009ZA06026

PATIENT
  Sex: Male
  Weight: 120 kg

DRUGS (4)
  1. DIOVAN HCT [Suspect]
     Indication: HYPERTENSION
     Dosage: 160 MG, QD
     Route: 048
  2. DIOVAN HCT [Suspect]
     Dosage: 160 MG, BID
     Dates: start: 20090212, end: 20090214
  3. DIOVAN HCT [Suspect]
     Dosage: 160 MG, QD
     Route: 048
  4. BISOPROLOL [Concomitant]
     Dosage: 5 MG DAILY
     Dates: start: 20090214

REACTIONS (10)
  - DIZZINESS [None]
  - DYSPNOEA [None]
  - ERYTHEMA [None]
  - FATIGUE [None]
  - FLUSHING [None]
  - HEART RATE IRREGULAR [None]
  - NAUSEA [None]
  - PALPITATIONS [None]
  - SYNCOPE [None]
  - VOMITING [None]
